FAERS Safety Report 19022390 (Version 1)
Quarter: 2021Q1

REPORT INFORMATION
  Report Type: Report from Study
  Country: IN (occurrence: IN)
  Receive Date: 20210317
  Receipt Date: 20210317
  Transmission Date: 20210420
  Serious: Yes (Other)
  Sender: FDA-Public Use
  Company Number: IN-ASTRAZENECA-2021A136040

PATIENT
  Sex: Male
  Weight: 70 kg

DRUGS (16)
  1. GLUCOBAY [Concomitant]
     Active Substance: ACARBOSE
     Dosage: 0?1?1, BEFORE MEAL
  2. TIDE 10 [Concomitant]
     Dosage: 1?1?0 | AFTER MEAL
  3. PRAX 10 [Concomitant]
     Dosage: 0?1?0, AFTER MEAL, AFTER PTCA WAS DONE
  4. MOXIFLOX [Concomitant]
     Active Substance: MOXIFLOXACIN
     Dosage: 2?2?2
  5. ZYLOMIST [Concomitant]
     Dosage: 0?0?0, AS NEEDED. TO BE USED IN CASE OF CONGESTION.
  6. MUCOLITE SR [Concomitant]
     Dosage: 1?1?1, AFTER MEAL
  7. PRAZOPRESS XL [Concomitant]
     Dosage: 1?0?0, AFTER MEAL
  8. CARDIVAS [Concomitant]
     Dosage: 1?0?1, AFTER MEAL
  9. BILACAD M [Concomitant]
     Dosage: 0?0?1, AFTER MEAL
  10. NOVOMIX [Concomitant]
     Active Substance: INSULIN ASPART
     Dosage: 0?8?8, BEFORE MEAL, 30
  11. ECOSPRIN 75 [Concomitant]
     Dosage: 1?0?0, AFTER MEAL
  12. SILDOO 8 [Concomitant]
     Dosage: 0?0?1, AFTER MEAL
  13. TORCLIN 10 [Concomitant]
     Dosage: 1?0?1, AFTER MEAL
  14. ROZUCOR F 10 [Concomitant]
     Dosage: 0?0?1, AFTER MEAL
  15. BRILINTA [Suspect]
     Active Substance: TICAGRELOR
     Indication: CORONARY ANGIOPLASTY
     Route: 048
  16. AFOGLIP [Concomitant]
     Dosage: 1?0?0, BEFORE MEAL

REACTIONS (1)
  - Asphyxia [Recovered/Resolved]
